FAERS Safety Report 7249163-3 (Version None)
Quarter: 2011Q1

REPORT INFORMATION
  Report Type: 
  Country: None (occurrence: None)
  Receive Date: 20110128
  Receipt Date: 20100611
  Transmission Date: 20110831
  Serious: Yes (Hospitalization)
  Sender: FDA-Public Use
  Company Number: US-BAYER-200941727NA

PATIENT
  Sex: Female

DRUGS (13)
  1. YAZ [Suspect]
     Indication: ACNE
  2. HYDROCODONE [Concomitant]
  3. YASMIN [Suspect]
     Indication: PREMENSTRUAL SYNDROME
     Dosage: DATES MENTIONED: 02-JUN-2003, 15-APR-2004, 18-JUL-2005, 27-JUL-2006 AND 30-JUL-2007.
     Dates: start: 20030602
  4. VALTREX [Concomitant]
  5. VALIUM [Concomitant]
  6. YAZ [Suspect]
     Indication: THROMBOSIS
  7. YASMIN [Suspect]
     Indication: CONTRACEPTION
  8. MULTI-VITAMINS [Concomitant]
  9. DIURETICS [Concomitant]
     Indication: PREMENSTRUAL SYNDROME
  10. VICODIN [Concomitant]
  11. ANTIBIOTICS [Concomitant]
  12. VALIUM [Concomitant]
  13. YASMIN [Suspect]
     Indication: ACNE

REACTIONS (3)
  - OEDEMA PERIPHERAL [None]
  - DEEP VEIN THROMBOSIS [None]
  - PAIN IN EXTREMITY [None]
